FAERS Safety Report 6472010-4 (Version None)
Quarter: 2009Q4

REPORT INFORMATION
  Report Type: 
  Country: None (occurrence: None)
  Receive Date: 20091203
  Receipt Date: 20081017
  Transmission Date: 20100525
  Serious: Yes (Life-Threatening, Hospitalization, Other)
  Sender: FDA-Public Use
  Company Number: US-ELI_LILLY_AND_COMPANY-US200804002975

PATIENT
  Sex: Female
  Weight: 68 kg

DRUGS (24)
  1. CYMBALTA [Suspect]
     Indication: DEPRESSION
     Dosage: 120 MG, DAILY (1/D)
     Dates: start: 20080101, end: 20080101
  2. VITAMIN E [Concomitant]
  3. BIOTIN [Concomitant]
  4. FOLIC ACID [Concomitant]
  5. METOPROLOL [Concomitant]
     Indication: CARDIAC DISORDER
     Dosage: 50 MG, 2/D
  6. METOPROLOL [Concomitant]
     Dosage: 100 MG, 2/D
  7. XANAX [Concomitant]
     Dosage: 1 MG, 4/D
  8. XANAX [Concomitant]
     Dosage: 1 MG, AS NEEDED
  9. NEURONTIN [Concomitant]
     Dosage: 300 MG, 3/D
  10. AMITRIPTYLINE [Concomitant]
     Dosage: 100 MG, EACH EVENING
  11. TEMAZEPAM [Concomitant]
     Dosage: 30 MG, EACH EVENING
  12. MULTIVITAMINS AND IRON [Concomitant]
  13. LYRICA [Concomitant]
  14. DICLOFENAC [Concomitant]
  15. METHOCARBAMOL [Concomitant]
     Dosage: 1500 MG, EACH EVENING
  16. SOMA [Concomitant]
     Dosage: 1 D/F, UNK
  17. LORTAB [Concomitant]
     Dosage: 1 D/F, DAILY (1/D)
  18. PROPRANOLOL [Concomitant]
     Dosage: 10 MG, 3/D
  19. PROTONIX [Concomitant]
     Dosage: 40 MG, DAILY (1/D)
  20. CLONAZEPAM [Concomitant]
     Dosage: 30 MG, EACH EVENING
  21. ASPIRIN [Concomitant]
     Dosage: 81 MG, DAILY (1/D)
  22. IRON [Concomitant]
  23. ASCORBIC ACID [Concomitant]
     Dosage: 1 D/F, UNK
  24. ASCORBIC ACID [Concomitant]
     Dosage: 500 MG, DAILY (1/D)

REACTIONS (42)
  - ACUTE RESPIRATORY DISTRESS SYNDROME [None]
  - ALANINE AMINOTRANSFERASE INCREASED [None]
  - APPARENT DEATH [None]
  - ASPARTATE AMINOTRANSFERASE INCREASED [None]
  - BLOOD PRESSURE DECREASED [None]
  - CONTUSION [None]
  - COUGH [None]
  - DEHYDRATION [None]
  - DELIRIUM [None]
  - DRUG SCREEN POSITIVE [None]
  - DYSPHAGIA [None]
  - DYSPNOEA [None]
  - FALL [None]
  - FLUID OVERLOAD [None]
  - GASTRITIS [None]
  - HEAD INJURY [None]
  - HEPATIC FAILURE [None]
  - HYPOPHAGIA [None]
  - INFECTION [None]
  - INTERNATIONAL NORMALISED RATIO INCREASED [None]
  - LUNG INFILTRATION [None]
  - MEMORY IMPAIRMENT [None]
  - MULTI-ORGAN DISORDER [None]
  - MUSCLE STRAIN [None]
  - NAUSEA [None]
  - OVERDOSE [None]
  - PNEUMONIA [None]
  - PNEUMONIA ASPIRATION [None]
  - PRESBYOESOPHAGUS [None]
  - PRESYNCOPE [None]
  - PULMONARY EMBOLISM [None]
  - PYREXIA [None]
  - RENAL FAILURE [None]
  - RESPIRATORY FAILURE [None]
  - RESPIRATORY TRACT CONGESTION [None]
  - RHABDOMYOLYSIS [None]
  - SCIATICA [None]
  - SINUS DISORDER [None]
  - SYNCOPE [None]
  - TRICUSPID VALVE INCOMPETENCE [None]
  - VOMITING [None]
  - WITHDRAWAL SYNDROME [None]
